FAERS Safety Report 22660808 (Version 1)
Quarter: 2023Q2

REPORT INFORMATION
  Report Type: Spontaneous
  Country: US (occurrence: US)
  Receive Date: 20230630
  Receipt Date: 20230630
  Transmission Date: 20230722
  Serious: No
  Sender: FDA-Public Use
  Company Number: US-TEVA-2023-US-2899165

PATIENT
  Sex: Female

DRUGS (1)
  1. QVAR REDIHALER [Suspect]
     Active Substance: BECLOMETHASONE DIPROPIONATE
     Indication: Product used for unknown indication
     Dosage: STRENGTH: 80 MCG
     Route: 065

REACTIONS (4)
  - Eye irritation [Unknown]
  - Dyspnoea [Unknown]
  - Device delivery system issue [Unknown]
  - Accidental exposure to product [Unknown]
